FAERS Safety Report 21995290 (Version 1)
Quarter: 2023Q1

REPORT INFORMATION
  Report Type: Spontaneous
  Country: US (occurrence: None)
  Receive Date: 20230214
  Receipt Date: 20230214
  Transmission Date: 20230418
  Serious: Yes (Other)
  Sender: FDA-Public Use
  Company Number: None

PATIENT
  Age: 42 Year
  Sex: Male
  Weight: 83.25 kg

DRUGS (4)
  1. MAXIMUM STRENGTH ANTACID [Suspect]
     Active Substance: ALUMINUM HYDROXIDE\DIMETHICONE\MAGNESIUM HYDROXIDE
     Indication: Dyspepsia
     Dosage: FREQUENCY : AS NEEDED;?
     Route: 048
     Dates: start: 20230116, end: 20230116
  2. ALUMINUM HYDROXIDE [Concomitant]
     Active Substance: ALUMINUM HYDROXIDE
  3. VITAMIN C [Concomitant]
     Active Substance: ASCORBIC ACID
  4. CITRIC ACID [Concomitant]
     Active Substance: CITRIC ACID MONOHYDRATE

REACTIONS (5)
  - Headache [None]
  - Feeling abnormal [None]
  - Drug interaction [None]
  - Toxicity to various agents [None]
  - Product use complaint [None]

NARRATIVE: CASE EVENT DATE: 20230116
